FAERS Safety Report 6981701-8 (Version None)
Quarter: 2010Q3

REPORT INFORMATION
  Report Type: 
  Country: None (occurrence: None)
  Receive Date: 20100914
  Receipt Date: 20091022
  Transmission Date: 20110219
  Serious: No
  Sender: FDA-Public Use
  Company Number: US-PFIZER INC-2009259453

PATIENT
  Sex: Male
  Weight: 72.57 kg

DRUGS (5)
  1. LYRICA [Suspect]
     Indication: NEUROMA
     Dosage: 225 MG, 3X/DAY
  2. LYRICA [Suspect]
     Dosage: 150 MG, 2X/DAY
     Dates: start: 20090601
  3. LYRICA [Suspect]
     Dosage: 150 MG, 3X/DAY
  4. ADDERALL 10 [Concomitant]
     Dosage: UNK
  5. LAMICTAL [Concomitant]
     Dosage: UNK

REACTIONS (3)
  - OEDEMA [None]
  - PAIN [None]
  - WEIGHT INCREASED [None]
